FAERS Safety Report 20558432 (Version 1)
Quarter: 2022Q1

REPORT INFORMATION
  Report Type: Spontaneous
  Country: CN (occurrence: CN)
  Receive Date: 20220307
  Receipt Date: 20220307
  Transmission Date: 20220423
  Serious: Yes (Other)
  Sender: FDA-Public Use
  Company Number: CN-ABBVIE-22K-035-4301349-00

PATIENT
  Age: 51 Year
  Sex: Male
  Weight: 66 kg

DRUGS (4)
  1. VALPROATE SODIUM [Suspect]
     Active Substance: VALPROATE SODIUM
     Indication: Epilepsy
     Route: 048
     Dates: start: 20190904, end: 20190919
  2. OLANZAPINE [Suspect]
     Active Substance: OLANZAPINE
     Indication: Epilepsy
     Route: 048
     Dates: start: 20190904, end: 20190919
  3. NORVANCOMYCIN HYDROCHLORIDE [Concomitant]
     Active Substance: NORVANCOMYCIN HYDROCHLORIDE
     Indication: Product used for unknown indication
     Dates: start: 20190911, end: 20191014
  4. MEROPENEM [Concomitant]
     Active Substance: MEROPENEM
     Indication: Product used for unknown indication
     Dates: start: 20190915, end: 20191017

REACTIONS (1)
  - Drug-induced liver injury [Recovering/Resolving]
